FAERS Safety Report 11320056 (Version 1)
Quarter: 2015Q3

REPORT INFORMATION
  Report Type: Spontaneous
  Country: AT (occurrence: AT)
  Receive Date: 20150729
  Receipt Date: 20150729
  Transmission Date: 20151125
  Serious: Yes (Other)
  Sender: FDA-Public Use
  Company Number: PHHY2015AT013917

PATIENT
  Sex: Female

DRUGS (2)
  1. ILARIS [Suspect]
     Active Substance: CANAKINUMAB
     Indication: RHEUMATOID ARTHRITIS
     Dosage: UNK
     Route: 065
     Dates: start: 20150129
  2. ILARIS [Suspect]
     Active Substance: CANAKINUMAB
     Indication: HIDRADENITIS

REACTIONS (6)
  - Hidradenitis [Unknown]
  - Arthritis [Unknown]
  - Off label use [Unknown]
  - Groin abscess [Unknown]
  - Rheumatoid arthritis [Unknown]
  - Synovitis [Unknown]
